FAERS Safety Report 13663359 (Version 1)
Quarter: 2017Q2

REPORT INFORMATION
  Report Type: Spontaneous
  Country: US (occurrence: US)
  Receive Date: 20170619
  Receipt Date: 20170619
  Transmission Date: 20170830
  Serious: No
  Sender: FDA-Public Use
  Company Number: US-AUROBINDO-AUR-APU-2016-16239

PATIENT
  Age: 35 Year
  Sex: Female

DRUGS (2)
  1. OLANZAPINE TABLETS 20MG [Suspect]
     Active Substance: OLANZAPINE
     Indication: CONCUSSION
     Dosage: ONE TABLET A DAY BEFORE BED TIME
     Route: 065
     Dates: start: 20161224, end: 20161224
  2. DEPAKOTE [Concomitant]
     Active Substance: DIVALPROEX SODIUM
     Indication: PRODUCT USED FOR UNKNOWN INDICATION
     Route: 065

REACTIONS (2)
  - Somnolence [Unknown]
  - Sedation [Unknown]

NARRATIVE: CASE EVENT DATE: 20161224
